FAERS Safety Report 15608442 (Version 1)
Quarter: 2018Q4

REPORT INFORMATION
  Report Type: Spontaneous
  Country: SI (occurrence: SI)
  Receive Date: 20181112
  Receipt Date: 20181112
  Transmission Date: 20190205
  Serious: Yes (Other)
  Sender: FDA-Public Use
  Company Number: PHHY2018SI151635

PATIENT
  Age: 56 Year
  Sex: Male

DRUGS (2)
  1. PERINDOPRIL [Suspect]
     Active Substance: PERINDOPRIL
     Indication: PRODUCT USED FOR UNKNOWN INDICATION
     Dosage: 2 MG, UNK
     Route: 065
  2. FUROSEMIDE. [Suspect]
     Active Substance: FUROSEMIDE
     Indication: PRODUCT USED FOR UNKNOWN INDICATION
     Dosage: 3 DF, QW
     Route: 065

REACTIONS (9)
  - Hypertension [Unknown]
  - Cardiomegaly [Unknown]
  - Ejection fraction decreased [Unknown]
  - General physical condition decreased [Unknown]
  - Oedema peripheral [Unknown]
  - Heart rate increased [Unknown]
  - Respiratory tract infection [Recovered/Resolved]
  - Chest pain [Unknown]
  - Hypokinesia [Unknown]

NARRATIVE: CASE EVENT DATE: 2010
